FAERS Safety Report 25368666 (Version 2)
Quarter: 2025Q3

REPORT INFORMATION
  Report Type: Report from Study
  Country: JP (occurrence: JP)
  Receive Date: 20250528
  Receipt Date: 20250730
  Transmission Date: 20251020
  Serious: Yes (Life-Threatening)
  Sender: AMGEN
  Company Number: JP-AMGEN-JPNNI2023088973

PATIENT
  Age: 53 Year
  Sex: Male

DRUGS (5)
  1. SOTORASIB [Suspect]
     Active Substance: SOTORASIB
     Indication: Non-small cell lung cancer stage III
     Dosage: 960 MILLIGRAM, QD
     Route: 048
     Dates: start: 20220818, end: 20230425
  2. SOTORASIB [Suspect]
     Active Substance: SOTORASIB
     Indication: K-ras gene mutation
     Dosage: 960 MILLIGRAM, QD
     Route: 048
     Dates: start: 20240619, end: 20240709
  3. CARBOPLATIN [Concomitant]
     Active Substance: CARBOPLATIN
     Dates: start: 20240215, end: 20240521
  4. ABRAXANE [Concomitant]
     Active Substance: PACLITAXEL
     Dates: start: 20240215, end: 20240521
  5. TECENTRIQ [Concomitant]
     Active Substance: ATEZOLIZUMAB
     Dates: start: 20240215, end: 20240521

REACTIONS (3)
  - Non-small cell lung cancer [Not Recovered/Not Resolved]
  - Metastasis [Not Recovered/Not Resolved]
  - Therapeutic product effect incomplete [Not Recovered/Not Resolved]

NARRATIVE: CASE EVENT DATE: 20230425
